FAERS Safety Report 9196814 (Version 2)
Quarter: 2013Q2

REPORT INFORMATION
  Report Type: Spontaneous
  Country: PT (occurrence: PT)
  Receive Date: 20130328
  Receipt Date: 20130404
  Transmission Date: 20140414
  Serious: Yes (Hospitalization)
  Sender: FDA-Public Use
  Company Number: PHHY2013PT028253

PATIENT
  Age: 41 Year
  Sex: Female

DRUGS (8)
  1. ACETYLSALICYLIC ACID [Suspect]
     Indication: HYPERCOAGULATION
     Dosage: 0.1 MG, UNK
     Route: 048
  2. ACETYLSALICYLIC ACID [Suspect]
     Dosage: 1.5 MG, UNK
  3. ACETYLSALICYLIC ACID [Suspect]
     Dosage: 10 MG, UNK
  4. ACETYLSALICYLIC ACID [Suspect]
     Dosage: 20 MG, UNK
  5. ACETYLSALICYLIC ACID [Suspect]
     Dosage: 40 MG, UNK
  6. ACETYLSALICYLIC ACID [Suspect]
     Dosage: 75 MG, UNK
  7. ACETYLSALICYLIC ACID [Suspect]
     Dosage: 100 MG, DAILY
  8. IBUPROFEN [Concomitant]

REACTIONS (4)
  - Anaphylactic reaction [Recovered/Resolved]
  - Respiratory distress [Recovered/Resolved]
  - Rhinitis [Recovered/Resolved]
  - Urticaria [Recovered/Resolved]
